FAERS Safety Report 12536630 (Version 1)
Quarter: 2016Q3

REPORT INFORMATION
  Report Type: Spontaneous
  Country: US (occurrence: US)
  Receive Date: 20160707
  Receipt Date: 20160707
  Transmission Date: 20161109
  Serious: No
  Sender: FDA-Public Use
  Company Number: US-PFIZER INC-2016295679

PATIENT
  Sex: Female

DRUGS (5)
  1. ERYTHROMYCIN. [Suspect]
     Active Substance: ERYTHROMYCIN
  2. FUROSEMIDE. [Suspect]
     Active Substance: FUROSEMIDE
  3. CODEINE [Suspect]
     Active Substance: CODEINE
  4. INDOCIN [Suspect]
     Active Substance: INDOMETHACIN\INDOMETHACIN SODIUM
  5. RENAGEL [Suspect]
     Active Substance: SEVELAMER HYDROCHLORIDE

REACTIONS (1)
  - Drug hypersensitivity [Unknown]
